FAERS Safety Report 8305123-2 (Version None)
Quarter: 2012Q2

REPORT INFORMATION
  Report Type: 
  Country: None (occurrence: None)
  Receive Date: 20120416
  Receipt Date: 20120403
  Transmission Date: 20120825
  Serious: Yes (Other)
  Sender: FDA-Public Use
  Company Number: 2012031881

PATIENT
  Age: 47 Year
  Sex: Male

DRUGS (1)
  1. PURIFIED FACTOR VIII (ANTIHEMOPHILIC FACTOR (HUMAN) VWF, DRIED, PASTEU [Suspect]
     Indication: FACTOR VIII DEFICIENCY
     Dosage: (INTRAVENOUS (NOT OTHERWISE SPECIFIED))
     Route: 042
     Dates: start: 20020101

REACTIONS (1)
  - ANAPHYLACTIC REACTION [None]
